FAERS Safety Report 10729399 (Version 1)
Quarter: 2015Q1

REPORT INFORMATION
  Report Type: Spontaneous
  Country: US (occurrence: None)
  Receive Date: 20150120
  Receipt Date: 20150120
  Transmission Date: 20150721
  Serious: Yes (Other)
  Sender: FDA-Public Use
  Company Number: None

PATIENT
  Age: 64 Year
  Sex: Female
  Weight: 69.4 kg

DRUGS (1)
  1. RAMIPRIL. [Suspect]
     Active Substance: RAMIPRIL
     Indication: RENAL DISORDER
     Dosage: 2 PILLS
     Route: 048

REACTIONS (3)
  - Cough [None]
  - Tinnitus [None]
  - Bronchitis [None]

NARRATIVE: CASE EVENT DATE: 20150115
